FAERS Safety Report 5701475-8 (Version None)
Quarter: 2008Q2

REPORT INFORMATION
  Report Type: 
  Country: None (occurrence: None)
  Receive Date: 20080410
  Receipt Date: 20080402
  Transmission Date: 20081010
  Serious: Yes (Hospitalization)
  Sender: FDA-Public Use
  Company Number: US-GENENTECH-241268

PATIENT
  Sex: Male
  Weight: 90.5 kg

DRUGS (19)
  1. BLINDED RITUXIMAB [Suspect]
     Indication: VASCULITIS
     Dosage: 783.75 MG, SINGLE
     Route: 042
     Dates: start: 20070316
  2. BLINDED RITUXIMAB [Suspect]
     Dosage: 783.75 MG, SINGLE
     Route: 042
     Dates: start: 20070323
  3. BLINDED RITUXIMAB [Suspect]
     Dosage: 783.75 MG, SINGLE
     Route: 042
     Dates: start: 20070330
  4. BLINDED RITUXIMAB [Suspect]
     Dosage: 783.75 MG, SINGLE
     Route: 042
     Dates: start: 20070413
  5. CYCLOPHOSPHAMIDE [Suspect]
     Indication: VASCULITIS
     Dosage: 50 MG, QD
     Route: 048
     Dates: start: 20070316
  6. MAGNESIUM OXIDE [Concomitant]
     Indication: DRUG USE FOR UNKNOWN INDICATION
     Dates: start: 20060516
  7. MULTI-VITAMIN [Concomitant]
     Indication: DRUG USE FOR UNKNOWN INDICATION
     Dates: start: 20060516
  8. ZAROXOLYN [Concomitant]
     Indication: DRUG USE FOR UNKNOWN INDICATION
     Dates: start: 20060516
  9. HUMULIN INSULIN (REGULAR) [Concomitant]
     Indication: DRUG USE FOR UNKNOWN INDICATION
     Dates: start: 20060516
  10. LANTUS [Concomitant]
     Indication: DRUG USE FOR UNKNOWN INDICATION
     Dates: start: 20060516
  11. DARVOCET-N 100 [Concomitant]
     Indication: DRUG USE FOR UNKNOWN INDICATION
     Dates: start: 20060517
  12. PRINIVIL [Concomitant]
     Indication: DRUG USE FOR UNKNOWN INDICATION
     Dates: start: 20060517
  13. LASIX [Concomitant]
     Indication: DRUG USE FOR UNKNOWN INDICATION
     Dates: start: 20060601
  14. PENTAMIDINE ISETHIONATE [Concomitant]
     Indication: DRUG USE FOR UNKNOWN INDICATION
     Dates: start: 20060707
  15. CELLCEPT [Concomitant]
     Indication: DRUG USE FOR UNKNOWN INDICATION
     Dates: start: 20060917
  16. MYCELEX [Concomitant]
     Indication: DRUG USE FOR UNKNOWN INDICATION
     Dates: start: 20061002
  17. VALCYTE [Concomitant]
     Indication: DRUG USE FOR UNKNOWN INDICATION
     Dates: start: 20061027
  18. LOPRESSOR [Concomitant]
     Indication: DRUG USE FOR UNKNOWN INDICATION
     Dates: start: 20061027
  19. LISPRO INSULIN [Concomitant]
     Indication: DRUG USE FOR UNKNOWN INDICATION
     Dates: start: 20060927

REACTIONS (1)
  - WEGENER'S GRANULOMATOSIS [None]
